FAERS Safety Report 16332203 (Version 3)
Quarter: 2019Q3

REPORT INFORMATION
  Report Type: Spontaneous
  Country: GB (occurrence: GB)
  Receive Date: 20190520
  Receipt Date: 20190821
  Transmission Date: 20191004
  Serious: Yes (Life-Threatening, Other)
  Sender: FDA-Public Use
  Company Number: GB-MICRO LABS LIMITED-ML2019-01076

PATIENT
  Age: 93 Year
  Sex: Female

DRUGS (3)
  1. CELECOXIB 100 MG CAPSULES, HARD [Suspect]
     Active Substance: CELECOXIB
     Indication: ARTHRITIS
     Dosage: 100 MG/DAY
     Route: 048
     Dates: start: 20190216, end: 20190301
  2. CELECOXIB. [Suspect]
     Active Substance: CELECOXIB
  3. OMEPRAZOLE. [Concomitant]
     Active Substance: OMEPRAZOLE

REACTIONS (9)
  - Asthenia [Recovering/Resolving]
  - Cardiac fibrillation [Not Recovered/Not Resolved]
  - Malaise [Recovering/Resolving]
  - Cerebrovascular accident [Unknown]
  - Dyspnoea [Unknown]
  - Arthritis [Unknown]
  - Pulmonary oedema [Unknown]
  - Syncope [Unknown]
  - Disturbance in attention [Unknown]

NARRATIVE: CASE EVENT DATE: 2019
